FAERS Safety Report 6121302-7 (Version None)
Quarter: 2009Q1

REPORT INFORMATION
  Report Type: 
  Country: None (occurrence: None)
  Receive Date: 20090313
  Receipt Date: 20090225
  Transmission Date: 20090719
  Serious: Yes (Hospitalization)
  Sender: FDA-Public Use
  Company Number: 8043657

PATIENT
  Age: 30 Month
  Sex: Male

DRUGS (1)
  1. XOZAL [Suspect]
     Indication: EAR INFECTION
     Dosage: PO
     Route: 048
     Dates: start: 20090201, end: 20090201

REACTIONS (1)
  - SYNCOPE [None]
